FAERS Safety Report 14826433 (Version 1)
Quarter: 2018Q2

REPORT INFORMATION
  Report Type: Spontaneous
  Country: US (occurrence: US)
  Receive Date: 20180417
  Receipt Date: 20180417
  Transmission Date: 20180711
  Serious: Yes (Hospitalization)
  Sender: FDA-Public Use
  Company Number: None

PATIENT
  Age: 74 Year
  Sex: Male

DRUGS (16)
  1. ATORVASTATIN [Concomitant]
     Active Substance: ATORVASTATIN
  2. FENOFIBRATE. [Concomitant]
     Active Substance: FENOFIBRATE
  3. FLONASE [Concomitant]
     Active Substance: FLUTICASONE PROPIONATE
  4. NORCO [Concomitant]
     Active Substance: ACETAMINOPHEN\HYDROCODONE BITARTRATE
  5. DULOXETINE. [Concomitant]
     Active Substance: DULOXETINE
  6. FAMOTIDINE. [Concomitant]
     Active Substance: FAMOTIDINE
  7. MORPHINE [Concomitant]
     Active Substance: MORPHINE
  8. ASA [Concomitant]
     Active Substance: ASPIRIN
  9. TAMSULOSIN [Concomitant]
     Active Substance: TAMSULOSIN
  10. NORTRIPTYLINE [Concomitant]
     Active Substance: NORTRIPTYLINE
  11. REVLIMID [Suspect]
     Active Substance: LENALIDOMIDE
     Indication: PLASMA CELL MYELOMA
     Dosage: ?          OTHER FREQUENCY:DAILY FOR 21D/28D;?
     Route: 048
     Dates: start: 201611, end: 20180323
  12. LISINOPRIL. [Concomitant]
     Active Substance: LISINOPRIL
  13. ACYCLOVIR. [Concomitant]
     Active Substance: ACYCLOVIR
  14. LENALIDOMIDE [Concomitant]
     Active Substance: LENALIDOMIDE
  15. GLIPIZIDE. [Concomitant]
     Active Substance: GLIPIZIDE
  16. METFORMIN [Concomitant]
     Active Substance: METFORMIN HYDROCHLORIDE

REACTIONS (5)
  - Sepsis [None]
  - Flushing [None]
  - Upper respiratory tract infection [None]
  - Pneumonia [None]
  - Multi-organ disorder [None]

NARRATIVE: CASE EVENT DATE: 20180323
